FAERS Safety Report 12105862 (Version 1)
Quarter: 2016Q1

REPORT INFORMATION
  Report Type: Spontaneous
  Country: US (occurrence: US)
  Receive Date: 20160223
  Receipt Date: 20160223
  Transmission Date: 20160526
  Serious: No
  Sender: FDA-Public Use
  Company Number: US-AMNEAL PHARMACEUTICALS-2016AMN00073

PATIENT
  Age: 76 Year
  Sex: Female

DRUGS (5)
  1. CETIRIZINE [Suspect]
     Active Substance: CETIRIZINE HYDROCHLORIDE
     Indication: HYPERSENSITIVITY
     Dosage: 1 TABLETS, 1X/DAY
     Route: 048
     Dates: start: 20150608, end: 20150619
  2. CETIRIZINE [Suspect]
     Active Substance: CETIRIZINE HYDROCHLORIDE
     Dosage: 1 TABLETS, 1X/DAY
     Route: 048
     Dates: start: 20150608, end: 20150619
  3. PRAVASTATIN [Concomitant]
     Active Substance: PRAVASTATIN\PRAVASTATIN SODIUM
     Indication: BLOOD CHOLESTEROL INCREASED
  4. CETIRIZINE [Suspect]
     Active Substance: CETIRIZINE HYDROCHLORIDE
     Dosage: 1 TABLETS, 1X/DAY
     Route: 048
     Dates: start: 20150608, end: 20150619
  5. CETIRIZINE [Suspect]
     Active Substance: CETIRIZINE HYDROCHLORIDE
     Dosage: 1 TABLETS, 1X/DAY
     Route: 048
     Dates: start: 20150608, end: 20150619

REACTIONS (2)
  - Abdominal pain [Recovered/Resolved]
  - Circadian rhythm sleep disorder [Recovered/Resolved]

NARRATIVE: CASE EVENT DATE: 201506
